FAERS Safety Report 15604496 (Version 3)
Quarter: 2018Q4

REPORT INFORMATION
  Report Type: Report from Study
  Country: HU (occurrence: HU)
  Receive Date: 20181110
  Receipt Date: 20181220
  Transmission Date: 20190205
  Serious: Yes (Death, Hospitalization, Other)
  Sender: FDA-Public Use
  Company Number: PHHY2018HU150983

PATIENT
  Sex: Female
  Weight: 67 kg

DRUGS (3)
  1. ZARZIO [Suspect]
     Active Substance: FILGRASTIM
     Indication: PROPHYLAXIS
     Route: 065
  2. FENTANYL. [Concomitant]
     Active Substance: FENTANYL
     Indication: PAIN
     Dosage: 75 MICG/H, UNK
     Route: 065
     Dates: start: 2018
  3. FENTANYL. [Concomitant]
     Active Substance: FENTANYL
     Dosage: 100 MICG/H, UNK
     Route: 065

REACTIONS (15)
  - Dyspnoea [Not Recovered/Not Resolved]
  - Hepatic cirrhosis [Unknown]
  - Anaemia [Unknown]
  - Thrombocytopenia [Not Recovered/Not Resolved]
  - Mediastinum neoplasm [Not Recovered/Not Resolved]
  - Neoplasm progression [Fatal]
  - Chest pain [Not Recovered/Not Resolved]
  - Hepatitis C [Recovered/Resolved]
  - Metastasis [Unknown]
  - Neuroendocrine carcinoma [Unknown]
  - Metastases to the mediastinum [Fatal]
  - Back pain [Not Recovered/Not Resolved]
  - Chest wall mass [Not Recovered/Not Resolved]
  - Respiratory failure [Fatal]
  - Somnolence [Unknown]

NARRATIVE: CASE EVENT DATE: 2000
